FAERS Safety Report 5945912-2 (Version None)
Quarter: 2008Q4

REPORT INFORMATION
  Report Type: 
  Country: None (occurrence: None)
  Receive Date: 20081110
  Receipt Date: 20081030
  Transmission Date: 20090506
  Serious: Yes (Other)
  Sender: FDA-Public Use
  Company Number: US-JNJFOC-20081100629

PATIENT
  Sex: Female
  Weight: 49.9 kg

DRUGS (7)
  1. MOTRIN [Suspect]
     Indication: INFLAMMATION
  2. IBUPROFEN TABLETS [Suspect]
  3. IBUPROFEN TABLETS [Suspect]
     Indication: INFLAMMATION
  4. CALCIUM [Concomitant]
  5. VITAMIN B-12 [Concomitant]
  6. GARLIC [Concomitant]
  7. HERBS [Concomitant]

REACTIONS (5)
  - DRUG INEFFECTIVE [None]
  - FLANK PAIN [None]
  - HYPERTENSION [None]
  - NEPHROLITHIASIS [None]
  - PERIARTHRITIS [None]
